FAERS Safety Report 10164838 (Version 1)
Quarter: 2014Q2

REPORT INFORMATION
  Report Type: Spontaneous
  Country: US (occurrence: US)
  Receive Date: 20140510
  Receipt Date: 20140510
  Transmission Date: 20141212
  Serious: No
  Sender: FDA-Public Use
  Company Number: US-BRISTOL-MYERS SQUIBB COMPANY-20460598

PATIENT
  Age: 64 Year
  Sex: Male
  Weight: 82.99 kg

DRUGS (3)
  1. BYETTA [Suspect]
     Indication: TYPE 2 DIABETES MELLITUS
  2. GLIPIZIDE [Concomitant]
     Route: 048
  3. ATORVASTATIN [Concomitant]
     Route: 048

REACTIONS (2)
  - Urinary tract infection [Recovering/Resolving]
  - Drug dose omission [Unknown]
